FAERS Safety Report 16776397 (Version 1)
Quarter: 2019Q3

REPORT INFORMATION
  Report Type: Spontaneous
  Country: US (occurrence: US)
  Receive Date: 20190905
  Receipt Date: 20190905
  Transmission Date: 20191005
  Serious: No
  Sender: FDA-Public Use
  Company Number: US-WELLSTAT THERAPEUTICS CORPORATION-2074058

PATIENT
  Age: 18 Month
  Sex: Male

DRUGS (2)
  1. VISTOGARD [Suspect]
     Active Substance: URIDINE TRIACETATE
     Indication: ACCIDENTAL OVERDOSE
     Route: 050
     Dates: start: 201902
  2. CAPECITABINE. [Concomitant]
     Active Substance: CAPECITABINE
     Dates: start: 201902

REACTIONS (1)
  - Complication associated with device [Unknown]

NARRATIVE: CASE EVENT DATE: 201902
